FAERS Safety Report 14663181 (Version 1)
Quarter: 2018Q1

REPORT INFORMATION
  Report Type: Spontaneous
  Country: FR (occurrence: FR)
  Receive Date: 20180321
  Receipt Date: 20180321
  Transmission Date: 20180509
  Serious: Yes (Other)
  Sender: FDA-Public Use
  Company Number: FR-MERCK KGAA-2044206

PATIENT
  Age: 31 Year
  Sex: Female

DRUGS (1)
  1. NOVOTHYROX [Suspect]
     Active Substance: LEVOTHYROXINE SODIUM
     Indication: IMMUNOSUPPRESSION

REACTIONS (20)
  - Anger [None]
  - Nausea [None]
  - Headache [None]
  - Palpitations [None]
  - Dizziness [None]
  - Gastrointestinal pain [None]
  - Anxiety [None]
  - Loss of personal independence in daily activities [None]
  - Insomnia [None]
  - Fatigue [None]
  - Myalgia [None]
  - Alopecia [None]
  - Nervousness [None]
  - Emotional distress [None]
  - Social avoidant behaviour [None]
  - Asthenia [None]
  - Syncope [None]
  - Colitis [None]
  - Depression [None]
  - Tremor [None]

NARRATIVE: CASE EVENT DATE: 201703
